FAERS Safety Report 4421028-1 (Version None)
Quarter: 2004Q3

REPORT INFORMATION
  Report Type: 
  Country: None (occurrence: None)
  Receive Date: 20040809
  Receipt Date: 20040728
  Transmission Date: 20050211
  Serious: Yes (Death)
  Sender: FDA-Public Use
  Company Number: JP-GLAXOSMITHKLINE-B0341134A

PATIENT
  Age: 6 Year
  Sex: Male

DRUGS (1)
  1. BECOTIDE [Suspect]
     Route: 055
     Dates: start: 20020101, end: 20020101

REACTIONS (1)
  - ANAPHYLACTIC SHOCK [None]
